FAERS Safety Report 7780546-9 (Version None)
Quarter: 2011Q3

REPORT INFORMATION
  Report Type: 
  Country: None (occurrence: None)
  Receive Date: 20110927
  Receipt Date: 20110915
  Transmission Date: 20111222
  Serious: Yes (Hospitalization, Other)
  Sender: FDA-Public Use
  Company Number: US-BAYER-2011-083381

PATIENT
  Age: 43 Year
  Sex: Male
  Weight: 86.168 kg

DRUGS (1)
  1. ALEVE (CAPLET) [Suspect]
     Indication: HEADACHE
     Dosage: COUNT SIZE 1CT
     Route: 048
     Dates: start: 20110901, end: 20110901

REACTIONS (8)
  - ERYTHEMA [None]
  - SWELLING FACE [None]
  - PARAESTHESIA [None]
  - HYPERHIDROSIS [None]
  - BLOOD PRESSURE DECREASED [None]
  - MALAISE [None]
  - HYPERSENSITIVITY [None]
  - OEDEMA PERIPHERAL [None]
